FAERS Safety Report 16254356 (Version 2)
Quarter: 2019Q2

REPORT INFORMATION
  Report Type: Report from Study
  Country: JP (occurrence: JP)
  Receive Date: 20190430
  Receipt Date: 20190515
  Transmission Date: 20190711
  Serious: Yes (Death)
  Sender: FDA-Public Use
  Company Number: JP-ACTELION-A-CH2019-189687

PATIENT
  Age: 51 Year
  Sex: Male

DRUGS (2)
  1. OPSUMIT [Suspect]
     Active Substance: MACITENTAN
     Indication: PULMONARY ARTERIAL HYPERTENSION
     Dosage: 10 MG, QD
     Route: 048
     Dates: start: 20190319, end: 201904
  2. UPTRAVI [Suspect]
     Active Substance: SELEXIPAG
     Indication: PULMONARY ARTERIAL HYPERTENSION
     Dosage: 0.4 MG, QD
     Route: 048
     Dates: start: 20190327, end: 20190416

REACTIONS (2)
  - Arrhythmia [Fatal]
  - Sudden death [Fatal]

NARRATIVE: CASE EVENT DATE: 20190416
